FAERS Safety Report 7258297-9 (Version None)
Quarter: 2011Q1

REPORT INFORMATION
  Report Type: 
  Country: None (occurrence: None)
  Receive Date: 20110129
  Receipt Date: 20100715
  Transmission Date: 20110831
  Serious: No
  Sender: FDA-Public Use
  Company Number: US-ABBOTT-10P-163-0657987-00

PATIENT
  Sex: Female

DRUGS (11)
  1. METHOTREXATE [Concomitant]
     Indication: FIBROMYALGIA
  2. EYE DROPS [Concomitant]
     Indication: IRITIS
  3. AMLODIPINE [Concomitant]
     Indication: BLOOD PRESSURE INCREASED
  4. FEXOFENADINE HCL [Concomitant]
     Indication: MIGRAINE
  5. TOPIRAMATE [Concomitant]
     Indication: MIGRAINE
  6. EYE DROPS [Concomitant]
     Indication: UVEITIS
  7. OMEPRAZOLE [Concomitant]
     Indication: GASTROOESOPHAGEAL REFLUX DISEASE
  8. CYMBALTA [Concomitant]
     Indication: DEPRESSION
  9. SINGULAIR [Concomitant]
     Indication: HYPERSENSITIVITY
  10. HUMIRA [Suspect]
     Indication: ANKYLOSING SPONDYLITIS
     Dates: start: 20100701
  11. GABAPENTIN [Concomitant]
     Indication: FIBROMYALGIA

REACTIONS (1)
  - INJECTION SITE PAIN [None]
